FAERS Safety Report 8062120-2 (Version None)
Quarter: 2012Q1

REPORT INFORMATION
  Report Type: 
  Country: None (occurrence: None)
  Receive Date: 20120123
  Receipt Date: 20120110
  Transmission Date: 20120608
  Serious: No
  Sender: FDA-Public Use
  Company Number: US-ELI_LILLY_AND_COMPANY-US201104000096

PATIENT
  Sex: Female
  Weight: 50.34 kg

DRUGS (16)
  1. VYTORIN [Concomitant]
     Dosage: UNK, QD
  2. FORTEO [Suspect]
     Dosage: 1 DF, QD
     Route: 058
  3. LASIX [Concomitant]
     Dosage: 40 MG, QD
  4. FORTEO [Suspect]
     Indication: OSTEOPOROSIS
     Dosage: 1 DF, QD
     Route: 058
     Dates: start: 20100825
  5. DILANTIN [Concomitant]
     Dosage: 100 MG, BID
  6. EXFORGE [Concomitant]
     Dosage: UNK, QD
  7. PHENOBARBITAL TAB [Concomitant]
     Dosage: 16.2 MG, BID
  8. LIPITOR [Concomitant]
     Dosage: 20 MG, QD
  9. FORTEO [Suspect]
     Dosage: 1 DF, QD
     Route: 058
  10. CALTRATE + VITAMIN D [Concomitant]
     Dosage: UNK, BID
  11. COREG CR [Concomitant]
     Dosage: 1 DF, QD
  12. MICRO-K [Concomitant]
     Dosage: UNK, QD
  13. DIAZEPAM [Concomitant]
     Indication: ANXIETY
     Dosage: 5 MG, OTHER
  14. COMBIVENT [Concomitant]
     Dosage: UNK, QID PRN
  15. KLOR-CON [Concomitant]
     Dosage: 10 U, QD
  16. VALIUM [Concomitant]
     Dosage: 5 MG, BID PRN

REACTIONS (5)
  - GASTRITIS [None]
  - HIATUS HERNIA [None]
  - HYPOKINESIA [None]
  - FULL BLOOD COUNT DECREASED [None]
  - ANAEMIA [None]
